FAERS Safety Report 9508014 (Version 1)
Quarter: 2013Q1

REPORT INFORMATION
  Report Type: Spontaneous
  Country: US (occurrence: None)
  Receive Date: 20130305
  Receipt Date: 20130305
  Transmission Date: 20140127
  Serious: Yes (Other)
  Sender: FDA-Public Use
  Company Number: 163-21880-12051940

PATIENT
  Age: 72 Year
  Sex: Female
  Weight: 67.68 kg

DRUGS (9)
  1. REVLIMID [Suspect]
     Indication: MYELODYSPLASTIC SYNDROME
     Dosage: 5 MG, SATURDAY, SUNDAY, TUESDAY, AND THURSDAY, PO
     Route: 048
     Dates: start: 20090106
  2. VITAMIN B12 (CYANOCOBALAMIN) (UNKNOWN) [Concomitant]
  3. LEVOTHYROXIN (LEVOTHYROXINE SODIUM) (UNKNOWN) [Concomitant]
  4. EVISTA (RALOXIFENE HYDROCHLORIDE) (UNKNOWN) [Concomitant]
  5. NEXIUM (ESOMEPRAZOLE) (UNKNOWN) [Concomitant]
  6. TRIAMT/HCTZ (DYAZIDE) (UNKNOWN) [Concomitant]
  7. AMLODIPINE (AMLODIPINE) (UNKNOWN) [Concomitant]
  8. POTASSIUM CHLORIDE (POTASSIUM CHLORIDE) (UNKNOWN) [Concomitant]
  9. SIMVASTATIN [Concomitant]

REACTIONS (3)
  - Nasopharyngitis [None]
  - Sinus congestion [None]
  - Sneezing [None]
